FAERS Safety Report 7004715-0 (Version None)
Quarter: 2010Q3

REPORT INFORMATION
  Report Type: 
  Country: None (occurrence: None)
  Receive Date: 20100917
  Receipt Date: 20100909
  Transmission Date: 20110219
  Serious: Yes (Hospitalization)
  Sender: FDA-Public Use
  Company Number: LTI2010A00197

PATIENT
  Age: 76 Year
  Sex: Male

DRUGS (6)
  1. COMPETACT (PIOGLITAZONE HYDROCHLORIDE, METFORMIN [Suspect]
     Indication: TYPE 2 DIABETES MELLITUS
     Dosage: 2 DF (1 DF, 2 IN 1 D) ORAL
     Route: 048
     Dates: start: 20100715, end: 20100801
  2. DILTIAZEM HYDROCHLORIDE [Suspect]
     Indication: HYPERTENSION
     Dosage: 200 MG (200 MG,1 IN 1 D) ORAL
     Route: 048
     Dates: start: 20100715, end: 20100801
  3. ATORVASTATIN CALCIUM [Concomitant]
  4. NEXIUM [Concomitant]
  5. ATENOLOL [Concomitant]
  6. ASPEGIC (ACETYLSALICYLATE LYSINE) [Concomitant]

REACTIONS (2)
  - PRURITUS [None]
  - RASH [None]
